FAERS Safety Report 26060251 (Version 2)
Quarter: 2025Q4

REPORT INFORMATION
  Report Type: Report from Study
  Country: IL (occurrence: IL)
  Receive Date: 20251118
  Receipt Date: 20251126
  Transmission Date: 20260118
  Serious: Yes (Hospitalization)
  Sender: ABBVIE
  Company Number: IL-ABBVIE-6553045

PATIENT
  Age: 69 Year
  Sex: Male

DRUGS (3)
  1. CARBIDOPA\LEVODOPA [Suspect]
     Active Substance: CARBIDOPA\LEVODOPA
     Indication: Parkinson^s disease
     Route: 050
     Dates: start: 20170225
  2. CARBIDOPA\LEVODOPA [Suspect]
     Active Substance: CARBIDOPA\LEVODOPA
     Dosage: MD- 0.2ML, ADDITIONAL TUBE FILING- 3.0ML, CD- 3.5ML, ED- 1.80ML, NIGHT CONTINUOUS DOSAGE-3.0ML/H,...
     Route: 050
     Dates: start: 20241103, end: 20241104
  3. CARBIDOPA\LEVODOPA [Suspect]
     Active Substance: CARBIDOPA\LEVODOPA
     Dosage: MD- 3.2ML, CD- 3.5ML, ED- 1.80ML, REMAINS AT 24
     Route: 050
     Dates: start: 20251117, end: 20251117

REACTIONS (2)
  - Cerebrovascular accident [Recovering/Resolving]
  - Dizziness [Unknown]
